FAERS Safety Report 21897052 (Version 1)
Quarter: 2023Q1

REPORT INFORMATION
  Report Type: Spontaneous
  Country: US (occurrence: None)
  Receive Date: 20230120
  Receipt Date: 20230120
  Transmission Date: 20230417
  Serious: Yes (Hospitalization)
  Sender: FDA-Public Use
  Company Number: None

PATIENT
  Sex: Female

DRUGS (2)
  1. CIMZIA [Suspect]
     Active Substance: CERTOLIZUMAB PEGOL
     Indication: Lipoprotein metabolism disorder
     Dosage: 200MG EVERY 2 WEEKS UNDER THE SKIN
     Route: 058
     Dates: start: 20221215
  2. CIMZIA [Suspect]
     Active Substance: CERTOLIZUMAB PEGOL
     Indication: Lipids increased

REACTIONS (1)
  - Serum serotonin increased [None]
